FAERS Safety Report 5232383-7 (Version None)
Quarter: 2007Q1

REPORT INFORMATION
  Report Type: 
  Country: None (occurrence: None)
  Receive Date: 20070205
  Receipt Date: 20070129
  Transmission Date: 20070707
  Serious: Yes (Hospitalization)
  Sender: FDA-Public Use
  Company Number: FRP07000058

PATIENT
  Age: 83 Year
  Sex: Female

DRUGS (7)
  1. ACTONEL [Suspect]
     Indication: OSTEOPOROSIS
     Dosage: 35 MG, 1/WEEK, ORAL
     Route: 048
     Dates: end: 20061221
  2. HYPERIUM (RILMENIDINE) [Suspect]
     Indication: DRUG USE FOR UNKNOWN INDICATION
     Dosage: ORAL
     Route: 048
     Dates: end: 20061221
  3. CAPTEA (HYDROCHLOROTHIAZIDE, CAPTOPRIL) [Suspect]
     Indication: DRUG USE FOR UNKNOWN INDICATION
     Dosage: ORAL
     Route: 048
     Dates: end: 20061221
  4. KAOLOGEAIS (MAGNESIUM SULFATE, MAGNESIUM OXIDE, MEPROBAMATE, KAOLIN, S [Suspect]
     Indication: DRUG USE FOR UNKNOWN INDICATION
     Dosage: ORAL
     Route: 048
     Dates: start: 20061217, end: 20061217
  5. OROCAL D3 (CALCIUM CARBONATE, COLECALCIFEROL) [Suspect]
     Indication: DRUG USE FOR UNKNOWN INDICATION
     Dosage: ORAL
     Route: 048
     Dates: end: 20061221
  6. PRAVASTATIN [Suspect]
     Indication: DRUG USE FOR UNKNOWN INDICATION
     Dosage: 20 MG, DAILY, ORAL
     Route: 048
     Dates: end: 20061221
  7. PREVISCAN (FLUINDIONE) [Concomitant]

REACTIONS (2)
  - ATRIAL FIBRILLATION [None]
  - TORSADE DE POINTES [None]
